FAERS Safety Report 7238228-8 (Version None)
Quarter: 2011Q1

REPORT INFORMATION
  Report Type: 
  Country: None (occurrence: None)
  Receive Date: 20110121
  Receipt Date: 20110118
  Transmission Date: 20110831
  Serious: No
  Sender: FDA-Public Use
  Company Number: US-PFIZER INC-2011012902

PATIENT
  Age: 16 Year
  Sex: Male

DRUGS (1)
  1. PREPARATION H HYDROCORTISONE [Suspect]
     Indication: HAEMORRHOIDS

REACTIONS (1)
  - APPLICATION SITE HYPERSENSITIVITY [None]
